FAERS Safety Report 11080818 (Version 1)
Quarter: 2015Q2

REPORT INFORMATION
  Report Type: Spontaneous
  Country: FR (occurrence: FR)
  Receive Date: 20150501
  Receipt Date: 20150501
  Transmission Date: 20150821
  Serious: Yes (Death, Hospitalization)
  Sender: FDA-Public Use
  Company Number: US-ASTRAZENECA-2015SE40945

PATIENT
  Age: 91 Year
  Sex: Female

DRUGS (11)
  1. TAHOR [Concomitant]
     Active Substance: ATORVASTATIN CALCIUM
     Route: 048
  2. SERETIDE [Concomitant]
     Active Substance: FLUTICASONE FUROATE\SALMETEROL XINAFOATE
     Dosage: 250/25 MG/DOSE, TWO TIMES A DAY
     Route: 050
  3. SPIRIVA [Concomitant]
     Active Substance: TIOTROPIUM BROMIDE MONOHYDRATE
     Dosage: EVERY DAY
     Route: 050
  4. LEVOTHYROX [Concomitant]
     Active Substance: LEVOTHYROXINE
     Route: 048
  5. INIPOMP [Concomitant]
     Active Substance: PANTOPRAZOLE SODIUM
     Route: 048
  6. AUGMENTIN [Suspect]
     Active Substance: AMOXICILLIN\CLAVULANATE POTASSIUM
     Indication: PNEUMONIA
     Dosage: (2G/1G) 1 DF, TWO TIMES A DAY
     Route: 048
     Dates: start: 20150320, end: 20150327
  7. KENZEN [Suspect]
     Active Substance: CANDESARTAN
     Indication: HYPERTENSION
     Route: 048
     Dates: end: 20150327
  8. AMIODARONE [Concomitant]
     Active Substance: AMIODARONE
     Route: 048
  9. EPINITRIL [Concomitant]
     Active Substance: NITROGLYCERIN
     Route: 062
  10. ZYMAD [Concomitant]
     Active Substance: CHOLECALCIFEROL
     Route: 048
  11. PLAVIX [Concomitant]
     Active Substance: CLOPIDOGREL BISULFATE
     Route: 048

REACTIONS (4)
  - Diarrhoea [Fatal]
  - Dehydration [Fatal]
  - Hypotension [Fatal]
  - Asthenia [Fatal]

NARRATIVE: CASE EVENT DATE: 20150326
